FAERS Safety Report 21877913 (Version 1)
Quarter: 2023Q1

REPORT INFORMATION
  Report Type: Report from Study
  Country: US (occurrence: None)
  Receive Date: 20230118
  Receipt Date: 20230118
  Transmission Date: 20230417
  Serious: Yes (Hospitalization)
  Sender: FDA-Public Use
  Company Number: US-Eisai Medical Research-EC-2022-129831

PATIENT
  Age: 67 Year
  Sex: Female
  Weight: 70.45 kg

DRUGS (9)
  1. LENVIMA [Suspect]
     Active Substance: LENVATINIB
     Indication: Thyroid cancer metastatic
     Route: 048
     Dates: start: 20220726, end: 202212
  2. LENVIMA [Suspect]
     Active Substance: LENVATINIB
     Indication: Metastases to lung
  3. TYLENOL EXTRA STRENGTH [Concomitant]
     Active Substance: ACETAMINOPHEN
  4. MIRTAZAPINE [Concomitant]
     Active Substance: MIRTAZAPINE
  5. LANREOTIDE ACETATE [Concomitant]
     Active Substance: LANREOTIDE ACETATE
  6. VITAMIN D3 [Concomitant]
     Active Substance: CHOLECALCIFEROL
  7. LEVOTHYROXINE [Concomitant]
     Active Substance: LEVOTHYROXINE
  8. LOSARTAN [Concomitant]
     Active Substance: LOSARTAN
  9. ATENOLOL [Concomitant]
     Active Substance: ATENOLOL

REACTIONS (2)
  - Blood pressure increased [Not Recovered/Not Resolved]
  - Vitamin D abnormal [Unknown]

NARRATIVE: CASE EVENT DATE: 20220101
